FAERS Safety Report 5813453-9 (Version None)
Quarter: 2008Q3

REPORT INFORMATION
  Report Type: 
  Country: None (occurrence: None)
  Receive Date: 20080716
  Receipt Date: 20080716
  Transmission Date: 20090109
  Serious: Yes (Hospitalization)
  Sender: FDA-Public Use
  Company Number: None

PATIENT
  Sex: Female
  Weight: 67 kg

DRUGS (1)
  1. TEMOZOLOMIDE [Suspect]
     Dosage: 4550 MG

REACTIONS (3)
  - ASTHENIA [None]
  - HYPOKALAEMIA [None]
  - PANCYTOPENIA [None]
